FAERS Safety Report 8966511 (Version 1)
Quarter: 2012Q4

REPORT INFORMATION
  Report Type: 
  Country: US (occurrence: US)
  Receive Date: 20121217
  Receipt Date: 20121217
  Transmission Date: 20130627
  Serious: No
  Sender: FDA-Public Use
  Company Number: US-BAYER-2012-131937

PATIENT
  Age: 33 Year
  Sex: Female

DRUGS (1)
  1. MIRENA [Suspect]
     Indication: CONTRACEPTION
     Dosage: 20 mcg/24hr, CONT
     Route: 015
     Dates: start: 201208, end: 20121203

REACTIONS (10)
  - Hyperhidrosis [None]
  - Seborrhoea [None]
  - Acne [None]
  - Pain of skin [None]
  - Dermatitis [None]
  - Acne [None]
  - Acne cystic [None]
  - Burning sensation [None]
  - Scar [Not Recovered/Not Resolved]
  - Headache [None]
